FAERS Safety Report 11880255 (Version 1)
Quarter: 2015Q4

REPORT INFORMATION
  Report Type: Spontaneous
  Country: US (occurrence: US)
  Receive Date: 20151230
  Receipt Date: 20151230
  Transmission Date: 20160305
  Serious: Yes (Hospitalization, Other)
  Sender: FDA-Public Use
  Company Number: US-GLAXOSMITHKLINE-A0788027A

PATIENT
  Sex: Female

DRUGS (6)
  1. WELLBUTRIN SR [Suspect]
     Active Substance: BUPROPION HYDROCHLORIDE
     Indication: DEPRESSION
     Route: 048
     Dates: start: 2000, end: 2000
  2. MOTRIN SINUS [Concomitant]
  3. WELLBUTRIN [Suspect]
     Active Substance: BUPROPION HYDROCHLORIDE
     Dosage: 150 MG, UNK
  4. WELLBUTRIN XL [Suspect]
     Active Substance: BUPROPION HYDROCHLORIDE
     Indication: DEPRESSION
     Route: 048
     Dates: start: 2003, end: 2003
  5. WELLBUTRIN [Suspect]
     Active Substance: BUPROPION HYDROCHLORIDE
     Indication: DEPRESSION
     Dosage: 400 MG, 1D
     Route: 048
     Dates: start: 2001, end: 2004
  6. BUPROPION HYDROCHLORIDE. [Suspect]
     Active Substance: BUPROPION HYDROCHLORIDE
     Indication: PRODUCT USED FOR UNKNOWN INDICATION

REACTIONS (12)
  - Drug intolerance [Unknown]
  - Nausea [Recovered/Resolved]
  - Drug ineffective [Unknown]
  - Feeling drunk [Unknown]
  - Palpitations [Unknown]
  - Supraventricular tachycardia [Unknown]
  - Hospitalisation [Unknown]
  - Adverse drug reaction [Unknown]
  - Vomiting [Unknown]
  - Feeling abnormal [Unknown]
  - Cardiac ablation [Unknown]
  - Cardiac disorder [Unknown]

NARRATIVE: CASE EVENT DATE: 2000
